FAERS Safety Report 17547322 (Version 1)
Quarter: 2020Q1

REPORT INFORMATION
  Report Type: Spontaneous
  Country: US (occurrence: US)
  Receive Date: 20200316
  Receipt Date: 20200316
  Transmission Date: 20200409
  Serious: Yes (Hospitalization)
  Sender: FDA-Public Use
  Company Number: US-GENUS_LIFESCIENCES-USA-POI0580202000192

PATIENT
  Age: 49 Year
  Sex: Male
  Weight: 94.8 kg

DRUGS (13)
  1. BUSPIRONE [Concomitant]
     Active Substance: BUSPIRONE HYDROCHLORIDE
     Indication: ANXIETY
     Dates: start: 20190311
  2. INFLUENZA VACCINE POLYVALENT [Concomitant]
     Active Substance: INFLUENZA VIRUS VACCINE
     Indication: INFECTION PROPHYLAXIS
     Route: 030
     Dates: start: 20190220, end: 20190220
  3. BI 409306 INVESTIGATIONAL DRUG [Concomitant]
     Dates: start: 20181022, end: 20190513
  4. GABAPENTINE [Concomitant]
     Active Substance: GABAPENTIN
     Dates: start: 20190311
  5. GABAPENTINE [Concomitant]
     Active Substance: GABAPENTIN
     Indication: PRODUCT USED FOR UNKNOWN INDICATION
     Dates: start: 20190220, end: 20190221
  6. SERTRALINE [Concomitant]
     Active Substance: SERTRALINE HYDROCHLORIDE
     Indication: DEPRESSION
     Dates: start: 20190311
  7. FLUOXETINE [Concomitant]
     Active Substance: FLUOXETINE HYDROCHLORIDE
     Indication: DEPRESSION
     Dates: start: 20190103
  8. ACETAMINOPHEN. [Concomitant]
     Active Substance: ACETAMINOPHEN
     Indication: PAIN
     Dates: start: 20190220
  9. GOPRELTO [Suspect]
     Active Substance: COCAINE HYDROCHLORIDE
     Indication: PRODUCT USED FOR UNKNOWN INDICATION
     Dates: start: 2019
  10. TRAZODONE HYDROCHLORIDE. [Concomitant]
     Active Substance: TRAZODONE HYDROCHLORIDE
     Indication: INSOMNIA
     Dates: start: 20190311
  11. ACETAMINOPHEN. [Concomitant]
     Active Substance: ACETAMINOPHEN
     Indication: PYREXIA
  12. QUADRIVALENT INFLUENZA VACCINE [Concomitant]
     Indication: ANTIVIRAL PROPHYLAXIS
     Route: 030
     Dates: start: 20190220, end: 20190220
  13. NITROGLYCERIN. [Concomitant]
     Active Substance: NITROGLYCERIN
     Indication: CHEST PAIN
     Route: 030
     Dates: start: 20190220, end: 20190220

REACTIONS (3)
  - Acute myocardial infarction [Recovered/Resolved]
  - Psychotic disorder [Not Recovered/Not Resolved]
  - Schizophrenia [Recovered/Resolved]

NARRATIVE: CASE EVENT DATE: 20190102
